FAERS Safety Report 23538899 (Version 1)
Quarter: 2024Q1

REPORT INFORMATION
  Report Type: Spontaneous
  Country: FR (occurrence: FR)
  Receive Date: 20240219
  Receipt Date: 20240219
  Transmission Date: 20240409
  Serious: Yes (Hospitalization)
  Sender: FDA-Public Use
  Company Number: None

PATIENT
  Age: 82 Year
  Sex: Male
  Weight: 69 kg

DRUGS (4)
  1. BRAFTOVI [Suspect]
     Active Substance: ENCORAFENIB
     Indication: Metastatic malignant melanoma
     Dosage: 6 DF DAILY
     Route: 048
     Dates: start: 202112, end: 20220509
  2. BRAFTOVI [Suspect]
     Active Substance: ENCORAFENIB
     Dosage: 4 DF DAILY
     Route: 048
     Dates: start: 20220510, end: 20240102
  3. MEKTOVI [Suspect]
     Active Substance: BINIMETINIB
     Indication: Metastatic malignant melanoma
     Dosage: 6 DF DAILY
     Route: 048
     Dates: start: 202112, end: 20230413
  4. MEKTOVI [Suspect]
     Active Substance: BINIMETINIB
     Dosage: 4 DF DAILY
     Route: 048
     Dates: start: 20230414, end: 20240102

REACTIONS (3)
  - Photosensitivity reaction [Recovered/Resolved]
  - Pancreatitis acute [Recovered/Resolved]
  - Headache [Recovered/Resolved]

NARRATIVE: CASE EVENT DATE: 20220430
